FAERS Safety Report 8957103 (Version 2)
Quarter: 2013Q1

REPORT INFORMATION
  Report Type: Spontaneous
  Country: DE (occurrence: DE)
  Receive Date: 20121211
  Receipt Date: 20130121
  Transmission Date: 20140127
  Serious: Yes (Other)
  Sender: FDA-Public Use
  Company Number: DE-009507513-1212DEU001975

PATIENT
  Age: 72 Year
  Sex: Male

DRUGS (2)
  1. INEGY [Suspect]
     Indication: HYPERLIPIDAEMIA
     Dosage: 10 MG / 10 MG, QD
     Route: 048
     Dates: start: 20030902, end: 20121207
  2. BISOPROLOL [Concomitant]
     Indication: HYPERTENSION
     Dosage: 5 MG, QD
     Route: 048
     Dates: start: 2009, end: 2010

REACTIONS (1)
  - Epilepsy [Unknown]
